FAERS Safety Report 10062039 (Version 1)
Quarter: 2014Q2

REPORT INFORMATION
  Report Type: Spontaneous
  Country: US (occurrence: None)
  Receive Date: 20140403
  Receipt Date: 20140403
  Transmission Date: 20141212
  Serious: Yes (Hospitalization)
  Sender: FDA-Public Use
  Company Number: 2014UEUSA00302

PATIENT
  Age: 40 Year
  Sex: Male
  Weight: 91.6 kg

DRUGS (3)
  1. NUEDEXTA [Suspect]
     Indication: AFFECT LABILITY
     Dosage: 1 CAP, QD?
     Dates: start: 20140314, end: 20140320
  2. CLONIDINE (CLONIDINE) [Concomitant]
  3. PRAZOSIN (PRAZOSIN) [Concomitant]

REACTIONS (1)
  - Cerebrovascular accident [None]
